FAERS Safety Report 14296910 (Version 1)
Quarter: 2017Q4

REPORT INFORMATION
  Report Type: Spontaneous
  Country: US (occurrence: US)
  Receive Date: 20171218
  Receipt Date: 20171218
  Transmission Date: 20180321
  Serious: Yes (Other)
  Sender: FDA-Public Use
  Company Number: US-LPDUSPRD-20171713

PATIENT
  Sex: Female

DRUGS (1)
  1. SODIUM THIOSULFATE INJECTION, USP (1019-05) [Suspect]
     Active Substance: SODIUM THIOSULFATE
     Dosage: 25 G TIW
     Route: 042

REACTIONS (1)
  - Spinal fracture [Unknown]
